FAERS Safety Report 6161462-5 (Version None)
Quarter: 2009Q2

REPORT INFORMATION
  Report Type: 
  Country: None (occurrence: None)
  Receive Date: 20090421
  Receipt Date: 20090416
  Transmission Date: 20091009
  Serious: No
  Sender: FDA-Public Use
  Company Number: US-B.I. PHARMACEUTICALS,INC./RIDGEFIELD-2009-BP-03685BP

PATIENT
  Age: 79 Year
  Sex: Female
  Weight: 58.06 kg

DRUGS (7)
  1. AGGRENOX [Suspect]
     Indication: CEREBROVASCULAR ACCIDENT
     Dosage: 50MG/400MG
     Route: 048
     Dates: start: 20090101, end: 20090201
  2. PAXIL [Concomitant]
     Dosage: 40MG
  3. SIMVASTATIN [Concomitant]
     Dosage: 20MG
  4. QUINAPRIL [Concomitant]
     Dosage: 40MG
  5. NORVASC [Concomitant]
     Dosage: 10MG
  6. ATENOLOL [Concomitant]
     Dosage: 50MG
  7. ACTONEL [Concomitant]
     Dosage: 35MG

REACTIONS (3)
  - ABDOMINAL DISCOMFORT [None]
  - NAUSEA [None]
  - VOMITING [None]
